FAERS Safety Report 5520656-X (Version None)
Quarter: 2007Q4

REPORT INFORMATION
  Report Type: 
  Country: None (occurrence: None)
  Receive Date: 20071119
  Receipt Date: 20071106
  Transmission Date: 20080405
  Serious: Yes (Other)
  Sender: FDA-Public Use
  Company Number: US-PFIZER INC-2007093749

PATIENT
  Sex: Male
  Weight: 88.9 kg

DRUGS (4)
  1. LIPITOR [Suspect]
     Dates: start: 20060901, end: 20061101
  2. ALLOPURINOL [Concomitant]
  3. TOPROL-XL [Concomitant]
  4. VITAMINS [Concomitant]

REACTIONS (4)
  - ABASIA [None]
  - ASTHENIA [None]
  - DYSSTASIA [None]
  - MALAISE [None]
